FAERS Safety Report 19080213 (Version 1)
Quarter: 2021Q1

REPORT INFORMATION
  Report Type: Spontaneous
  Country: FR (occurrence: FR)
  Receive Date: 20210331
  Receipt Date: 20210331
  Transmission Date: 20210420
  Serious: Yes (Other)
  Sender: FDA-Public Use
  Company Number: FR-TEVA-2021-FR-1894818

PATIENT
  Age: 73 Year
  Sex: Male

DRUGS (1)
  1. TADAFIL TEVA [Suspect]
     Active Substance: TADALAFIL
     Route: 065
     Dates: start: 2016

REACTIONS (4)
  - Cardiac disorder [Unknown]
  - Palpitations [Unknown]
  - Carotid artery occlusion [Unknown]
  - Libido decreased [Unknown]

NARRATIVE: CASE EVENT DATE: 2020
